FAERS Safety Report 4490040-9 (Version None)
Quarter: 2004Q4

REPORT INFORMATION
  Report Type: 
  Country: None (occurrence: None)
  Receive Date: 20041027
  Receipt Date: 20041018
  Transmission Date: 20050328
  Serious: Yes (Death)
  Sender: FDA-Public Use
  Company Number: 2004-BP-10061RO

PATIENT
  Age: 80 Year
  Sex: Male

DRUGS (18)
  1. DEXAMETHASONE [Suspect]
     Indication: MULTIPLE MYELOMA
     Dates: start: 20020425, end: 20020428
  2. GENASENSE [Suspect]
     Indication: MULTIPLE MYELOMA
     Dates: start: 20020422, end: 20020429
  3. PAMIDRONATE DISODIUM [Concomitant]
  4. RANITIDINE [Concomitant]
  5. DIPHENHYDRAMINE HCL [Concomitant]
  6. ACETAMINOPHEN [Concomitant]
  7. CLOTRIMAZOLE (CLOTRIMAZOLE) [Concomitant]
  8. LEVOTHYROXINE SODIUM [Concomitant]
  9. HYDROCODONE W/ACETAMINOPHEN (VICODIN) [Concomitant]
  10. ASPIRIN [Concomitant]
  11. SENNA (SENNA ALEXANDRINA) [Concomitant]
  12. PSYLLIUM (PLANTAGO AFRA) [Concomitant]
  13. HEPARIN [Concomitant]
  14. EPOETIN ALFA (EPOETIN ALFA) [Concomitant]
  15. MULTIVITAMIN [Concomitant]
  16. VITAMIN B6 [Concomitant]
  17. VITAMIN C (ASCORBIC ACID) [Concomitant]
  18. VITAMIN E [Concomitant]

REACTIONS (2)
  - MALIGNANT NEOPLASM PROGRESSION [None]
  - MULTIPLE MYELOMA [None]
